FAERS Safety Report 10208436 (Version 1)
Quarter: 2014Q2

REPORT INFORMATION
  Report Type: Spontaneous
  Country: US (occurrence: US)
  Receive Date: 20140530
  Receipt Date: 20140530
  Transmission Date: 20141212
  Serious: Yes (Hospitalization)
  Sender: FDA-Public Use
  Company Number: US-GLAXOSMITHKLINE-A1074345A

PATIENT
  Age: 52 Year
  Sex: Female

DRUGS (11)
  1. ADVAIR HFA [Suspect]
     Indication: CHRONIC OBSTRUCTIVE PULMONARY DISEASE
     Dosage: 1PUFF TWICE PER DAY
     Route: 055
  2. LAMICTAL [Suspect]
     Indication: BIPOLAR DISORDER
     Dosage: 100MG TWICE PER DAY
     Route: 048
     Dates: start: 2013
  3. VENTOLIN [Suspect]
     Indication: ASTHMA
     Route: 055
     Dates: start: 2014
  4. FLUOXETINE [Concomitant]
  5. GABAPENTIN [Concomitant]
  6. CLONAZEPAM [Concomitant]
  7. RISPERDAL [Concomitant]
  8. GEODON [Concomitant]
  9. LISINOPRIL [Concomitant]
  10. MELOXICAM [Concomitant]
  11. PRAVASTATIN [Concomitant]

REACTIONS (3)
  - Loss of consciousness [Recovered/Resolved]
  - Road traffic accident [Recovered/Resolved]
  - Thrombosis [Recovered/Resolved]
